FAERS Safety Report 23643338 (Version 1)
Quarter: 2024Q1

REPORT INFORMATION
  Report Type: Other
  Country: NL (occurrence: None)
  Receive Date: 20240318
  Receipt Date: 20240318
  Transmission Date: 20240410
  Serious: Yes (Hospitalization, Other)
  Sender: FDA-Public Use
  Company Number: NL-ROCHE-3525009

PATIENT

DRUGS (9)
  1. RITUXIMAB [Suspect]
     Active Substance: RITUXIMAB
     Indication: Rheumatoid arthritis
     Route: 065
  2. TOCILIZUMAB [Suspect]
     Active Substance: TOCILIZUMAB
     Indication: Rheumatoid arthritis
     Route: 065
  3. ABATACEPT [Suspect]
     Active Substance: ABATACEPT
     Indication: Rheumatoid arthritis
     Route: 065
  4. ADALIMUMAB [Suspect]
     Active Substance: ADALIMUMAB\ISOPROPYL ALCOHOL
     Indication: Rheumatoid arthritis
     Route: 065
  5. CERTOLIZUMAB PEGOL [Suspect]
     Active Substance: CERTOLIZUMAB PEGOL
     Indication: Rheumatoid arthritis
     Route: 065
  6. ETANERCEPT [Suspect]
     Active Substance: ETANERCEPT
     Indication: Rheumatoid arthritis
     Route: 065
  7. GOLIMUMAB [Suspect]
     Active Substance: GOLIMUMAB
     Indication: Rheumatoid arthritis
     Route: 065
  8. SARILUMAB [Suspect]
     Active Substance: SARILUMAB
     Indication: Rheumatoid arthritis
     Route: 065
  9. VEDOLIZUMAB [Suspect]
     Active Substance: VEDOLIZUMAB
     Indication: Rheumatoid arthritis
     Route: 065

REACTIONS (32)
  - Erysipelas [Unknown]
  - Respiratory tract infection [Unknown]
  - Pneumonia [Unknown]
  - Prostatic abscess [Unknown]
  - Anal candidiasis [Unknown]
  - Angular cheilitis [Unknown]
  - Blister [Unknown]
  - Bursitis [Unknown]
  - Cellulitis [Unknown]
  - Cough [Unknown]
  - Cystitis [Unknown]
  - Eye infection [Unknown]
  - Herpes zoster [Unknown]
  - Infection susceptibility increased [Unknown]
  - Injection site erythema [Unknown]
  - Lymphadenopathy [Unknown]
  - Nasal inflammation [Unknown]
  - Nasopharyngitis [Unknown]
  - Oral mucosal blistering [Unknown]
  - Oral pain [Unknown]
  - Oropharyngeal pain [Unknown]
  - Periodontitis [Unknown]
  - Pyrexia [Unknown]
  - Rash [Unknown]
  - Rhinorrhoea [Unknown]
  - Sinusitis [Unknown]
  - Skin infection [Unknown]
  - Sneezing [Unknown]
  - Tongue fungal infection [Unknown]
  - Vulvitis [Unknown]
  - Vulvovaginal candidiasis [Unknown]
  - Wound infection [Unknown]
